FAERS Safety Report 6688528-5 (Version None)
Quarter: 2010Q2

REPORT INFORMATION
  Report Type: 
  Country: None (occurrence: None)
  Receive Date: 20100414
  Receipt Date: 20100330
  Transmission Date: 20101027
  Serious: Yes (Death)
  Sender: FDA-Public Use
  Company Number: B0646359A

PATIENT

DRUGS (4)
  1. BUSULPHAN (BUSULFAN) (FORMULATION UNKNOWN) (GENERIC) [Suspect]
     Indication: STEM CELL TRANSPLANT
     Dosage: 16 MG/KG/
  2. CYCLOPHOSPHAMIDE [Suspect]
     Indication: STEM CELL TRANSPLANT
     Dosage: 120 MG/KG
  3. IDARUBICIN (IDARUBICIN) (FORMULATION UNKNOWN) [Suspect]
     Indication: STEM CELL TRANSPLANT
  4. CYTOSINE (CYTOSINE) (FORMULATION UNKNOWN) [Suspect]
     Indication: CHEMOTHERAPY

REACTIONS (2)
  - SEPSIS [None]
  - STEM CELL TRANSPLANT [None]
